FAERS Safety Report 18020906 (Version 5)
Quarter: 2020Q3

REPORT INFORMATION
  Report Type: Spontaneous
  Country: US (occurrence: US)
  Receive Date: 20200714
  Receipt Date: 20200821
  Transmission Date: 20201103
  Serious: Yes (Death, Hospitalization)
  Sender: FDA-Public Use
  Company Number: US-CELGENEUS-USA-20200703263

PATIENT
  Sex: Female

DRUGS (18)
  1. THALOMID [Suspect]
     Active Substance: THALIDOMIDE
     Dosage: 50 ?150 MG
     Route: 048
     Dates: start: 200811
  2. THALOMID [Suspect]
     Active Substance: THALIDOMIDE
     Dosage: 150?100 MG
     Route: 048
     Dates: start: 201305
  3. THALOMID [Suspect]
     Active Substance: THALIDOMIDE
     Dosage: 100?50MG
     Route: 048
     Dates: start: 200701
  4. THALOMID [Suspect]
     Active Substance: THALIDOMIDE
     Dosage: 150 ?50 MG
     Route: 048
     Dates: start: 201604
  5. THALOMID [Suspect]
     Active Substance: THALIDOMIDE
     Dosage: 150 MILLIGRAM
     Route: 048
     Dates: start: 201206
  6. THALOMID [Suspect]
     Active Substance: THALIDOMIDE
     Dosage: 150 MILLIGRAM
     Route: 048
     Dates: start: 201511
  7. THALOMID [Suspect]
     Active Substance: THALIDOMIDE
     Dosage: 150?50 MG
     Route: 048
     Dates: start: 20100226
  8. THALOMID [Suspect]
     Active Substance: THALIDOMIDE
     Dosage: 100?150 MG
     Route: 048
     Dates: start: 201103
  9. THALOMID [Suspect]
     Active Substance: THALIDOMIDE
     Dosage: 150 MILLIGRAM
     Route: 048
     Dates: start: 201410
  10. THALOMID [Suspect]
     Active Substance: THALIDOMIDE
     Dosage: 100 MILLIGRAM
     Route: 048
     Dates: start: 201608
  11. THALOMID [Suspect]
     Active Substance: THALIDOMIDE
     Dosage: 50 MILLIGRAM
     Route: 048
     Dates: start: 201609, end: 2020
  12. THALOMID [Suspect]
     Active Substance: THALIDOMIDE
     Indication: NEOPLASM
     Dosage: 100?50 MILLIGRAM
     Route: 048
     Dates: start: 200604
  13. THALOMID [Suspect]
     Active Substance: THALIDOMIDE
     Indication: OFF LABEL USE
     Dosage: 100 MILLIGRAM
     Route: 048
     Dates: start: 200609
  14. THALOMID [Suspect]
     Active Substance: THALIDOMIDE
     Dosage: 150 ?100 MG
     Route: 048
     Dates: start: 200804
  15. THALOMID [Suspect]
     Active Substance: THALIDOMIDE
     Dosage: 300 ?150 MG
     Route: 048
     Dates: start: 200909
  16. THALOMID [Suspect]
     Active Substance: THALIDOMIDE
     Dosage: 150 MILLIGRAM
     Route: 048
     Dates: start: 201405
  17. THALOMID [Suspect]
     Active Substance: THALIDOMIDE
     Dosage: 50 MILLIGRAM
     Route: 048
     Dates: start: 201402
  18. THALOMID [Suspect]
     Active Substance: THALIDOMIDE
     Indication: APHTHOUS ULCER
     Dosage: 100 MILLIGRAM
     Route: 048
     Dates: start: 200511

REACTIONS (1)
  - Pneumonia [Fatal]
